FAERS Safety Report 13527172 (Version 2)
Quarter: 2017Q2

REPORT INFORMATION
  Report Type: Spontaneous
  Country: US (occurrence: US)
  Receive Date: 20170509
  Receipt Date: 20170607
  Transmission Date: 20170830
  Serious: No
  Sender: FDA-Public Use
  Company Number: US-009507513-1705USA004171

PATIENT
  Sex: Female
  Weight: 76.19 kg

DRUGS (2)
  1. ALBUTEROL. [Concomitant]
     Active Substance: ALBUTEROL
  2. DULERA [Suspect]
     Active Substance: FORMOTEROL FUMARATE DIHYDRATE\MOMETASONE FUROATE
     Dosage: 200 MICROGRAM/5 MICROGRAM, 2 PUFFS DAILY

REACTIONS (3)
  - Product use issue [Unknown]
  - No adverse event [Unknown]
  - Drug dose omission [Unknown]
